FAERS Safety Report 16485854 (Version 1)
Quarter: 2019Q2

REPORT INFORMATION
  Report Type: Spontaneous
  Country: GB (occurrence: GB)
  Receive Date: 20190627
  Receipt Date: 20190627
  Transmission Date: 20190711
  Serious: Yes (Other)
  Sender: FDA-Public Use
  Company Number: GB-BRISTOL-MYERS SQUIBB COMPANY-BMS-2019-059785

PATIENT
  Age: 50 Year
  Sex: Male

DRUGS (1)
  1. KENALOG [Suspect]
     Active Substance: TRIAMCINOLONE ACETONIDE
     Indication: PRODUCT USED FOR UNKNOWN INDICATION
     Dosage: UNAV
     Route: 065

REACTIONS (8)
  - Blindness unilateral [Unknown]
  - Cushing^s syndrome [Unknown]
  - Hypertension [Unknown]
  - Abdominal distension [Unknown]
  - Intentional product use issue [Unknown]
  - Hyperglycaemia [Unknown]
  - Myocardial infarction [Unknown]
  - Amnesia [Unknown]
